FAERS Safety Report 8603386-7 (Version None)
Quarter: 2012Q3

REPORT INFORMATION
  Report Type: 
  Country: None (occurrence: None)
  Receive Date: 20120817
  Receipt Date: 20120814
  Transmission Date: 20120928
  Serious: No
  Sender: FDA-Public Use
  Company Number: US-PFIZER INC-2012198675

PATIENT
  Sex: Female
  Weight: 77.098 kg

DRUGS (9)
  1. AMLODIPINE/TELMISARTAN [Concomitant]
     Indication: HYPERTENSION
     Dosage: UNK, DAILY
  2. CYMBALTA [Concomitant]
     Dosage: 60 MG, DAILY
     Dates: start: 20100901
  3. LYRICA [Suspect]
     Indication: ARTHRALGIA
  4. DEXLANSOPRAZOLE [Concomitant]
     Dosage: 60 MG, DAILY
     Dates: start: 20100701
  5. LYRICA [Suspect]
     Indication: GOUT
  6. ALLOPURINOL [Concomitant]
     Dosage: 300 MG, DAILY
     Dates: start: 20100801
  7. LYRICA [Suspect]
     Indication: ARTHRITIS
  8. WELCHOL [Concomitant]
     Indication: GASTRIC DISORDER
     Dosage: 1250 MG, DAILY
     Route: 048
  9. LYRICA [Suspect]
     Indication: PAIN IN EXTREMITY
     Dosage: 50 MG, DAILY
     Route: 048
     Dates: start: 20120401

REACTIONS (1)
  - WHEEZING [None]
